FAERS Safety Report 24911806 (Version 1)
Quarter: 2025Q1

REPORT INFORMATION
  Report Type: Spontaneous
  Country: US (occurrence: US)
  Receive Date: 20250131
  Receipt Date: 20250131
  Transmission Date: 20250409
  Serious: No
  Sender: PFIZER
  Company Number: US-PFIZER INC-202500021357

PATIENT
  Age: 52 Year
  Sex: Female

DRUGS (2)
  1. MEKTOVI [Suspect]
     Active Substance: BINIMETINIB
     Indication: Malignant melanoma
     Dosage: 60 MG, 2X/DAY
  2. MEKTOVI [Suspect]
     Active Substance: BINIMETINIB
     Dosage: 45 MG, 2X/DAY

REACTIONS (3)
  - Off label use [Unknown]
  - Skin disorder [Recovered/Resolved]
  - Ocular discomfort [Recovered/Resolved]
